FAERS Safety Report 19355219 (Version 1)
Quarter: 2021Q2

REPORT INFORMATION
  Report Type: Spontaneous
  Country: US (occurrence: US)
  Receive Date: 20210601
  Receipt Date: 20210601
  Transmission Date: 20210717
  Serious: No
  Sender: FDA-Public Use
  Company Number: None

PATIENT
  Age: 73 Year
  Sex: Male
  Weight: 162 kg

DRUGS (21)
  1. CURCUMIN [Concomitant]
     Active Substance: CURCUMIN
  2. LISINOPRIL. [Concomitant]
     Active Substance: LISINOPRIL
  3. LYCOPENE [Concomitant]
     Active Substance: LYCOPENE
  4. KRILL OIL [Concomitant]
     Active Substance: DIETARY SUPPLEMENT\KRILL OIL
  5. LEVOTHYROXINE. [Concomitant]
     Active Substance: LEVOTHYROXINE
  6. NEXIUM [Concomitant]
     Active Substance: ESOMEPRAZOLE MAGNESIUM
  7. VITAMIN D3 [Concomitant]
     Active Substance: CHOLECALCIFEROL
  8. FISH OIL [Concomitant]
     Active Substance: FISH OIL
  9. METOPROLOL. [Concomitant]
     Active Substance: METOPROLOL
  10. METFORMIN [Concomitant]
     Active Substance: METFORMIN HYDROCHLORIDE
  11. 81 MG ASPIRIN [Concomitant]
     Active Substance: ASPIRIN
  12. LUTEIN [Concomitant]
     Active Substance: LUTEIN
  13. ALLOPURINOL. [Concomitant]
     Active Substance: ALLOPURINOL
  14. LORATADINE. [Suspect]
     Active Substance: LORATADINE
  15. CPAP [Concomitant]
     Active Substance: DEVICE
  16. CHELATED ZINC [Concomitant]
  17. ZEAXANTHIN [Concomitant]
     Active Substance: ZEAXANTHIN
  18. ASTAXANTHIN [Concomitant]
     Active Substance: ASTAXANTHIN
  19. LIPITOR [Concomitant]
     Active Substance: ATORVASTATIN CALCIUM
  20. BETA?SITOSTEROL [Concomitant]
  21. UBIQUINOL Q?10 [Concomitant]

REACTIONS (4)
  - Urine output decreased [None]
  - Renal impairment [None]
  - Blood pressure decreased [None]
  - Fatigue [None]

NARRATIVE: CASE EVENT DATE: 20200430
